FAERS Safety Report 24757310 (Version 1)
Quarter: 2024Q4

REPORT INFORMATION
  Report Type: Report from Study
  Country: US (occurrence: US)
  Receive Date: 20241220
  Receipt Date: 20241220
  Transmission Date: 20250115
  Serious: Yes (Hospitalization, Other)
  Sender: UNITED THERAPEUTICS
  Company Number: US-UNITED THERAPEUTICS-UNT-2024-039341

PATIENT
  Sex: Male

DRUGS (4)
  1. TREPROSTINIL [Suspect]
     Active Substance: TREPROSTINIL
     Indication: Pulmonary arterial hypertension
     Dosage: 2 MG (2 TABLETS OF 1 MG), TID
     Dates: start: 2024
  2. TREPROSTINIL [Suspect]
     Active Substance: TREPROSTINIL
     Dosage: UNK
  3. ORENITRAM [Suspect]
     Active Substance: TREPROSTINIL
     Indication: Pulmonary arterial hypertension
     Dosage: UNK
  4. SOTATERCEPT [Concomitant]
     Active Substance: SOTATERCEPT
     Indication: Product used for unknown indication
     Dosage: INJECT 0.4ML UNDER THE SKIN FOR 1 DOSE, THEN INCREASE TO 0.9ML FOR TARGET DOSE, Q3WK

REACTIONS (11)
  - Head injury [Unknown]
  - Fall [Recovered/Resolved with Sequelae]
  - Dyspnoea exertional [Unknown]
  - Pain in extremity [Unknown]
  - Feeling abnormal [Unknown]
  - Confusional state [Unknown]
  - Migraine [Unknown]
  - Diarrhoea [Unknown]
  - Chest discomfort [Unknown]
  - Condition aggravated [Unknown]
  - Intentional dose omission [Unknown]

NARRATIVE: CASE EVENT DATE: 20240101
